FAERS Safety Report 20746191 (Version 1)
Quarter: 2022Q2

REPORT INFORMATION
  Report Type: Spontaneous
  Country: US (occurrence: None)
  Receive Date: 20220425
  Receipt Date: 20220425
  Transmission Date: 20220721
  Serious: Yes (Hospitalization)
  Sender: FDA-Public Use
  Company Number: None

PATIENT
  Age: 52 Year
  Sex: Male
  Weight: 110 kg

DRUGS (5)
  1. DULAGLUTIDE [Suspect]
     Active Substance: DULAGLUTIDE
     Dosage: FREQUENCY : WEEKLY;?
     Route: 058
  2. GLIPIZIDE [Concomitant]
  3. METFORMIN [Concomitant]
  4. GABAPENTIN [Concomitant]
  5. OMEPRAZOLE [Concomitant]

REACTIONS (1)
  - Cholecystitis acute [None]
